FAERS Safety Report 21097914 (Version 4)
Quarter: 2022Q3

REPORT INFORMATION
  Report Type: Report from Study
  Country: JP (occurrence: JP)
  Receive Date: 20220719
  Receipt Date: 20220819
  Transmission Date: 20221027
  Serious: Yes (Life-Threatening, Other)
  Sender: FDA-Public Use
  Company Number: JP-BRISTOL-MYERS SQUIBB COMPANY-2022-075559

PATIENT
  Age: 67 Year
  Sex: Male
  Weight: 64 kg

DRUGS (21)
  1. CARBOPLATIN [Suspect]
     Active Substance: CARBOPLATIN
     Indication: Non-small cell lung cancer
     Dosage: TOTAL DRUG ADMINISTERED WAS 1025 MG
     Route: 065
     Dates: start: 20220421, end: 20220607
  2. PACLITAXEL [Suspect]
     Active Substance: PACLITAXEL
     Indication: Non-small cell lung cancer
     Dosage: TOTAL DRUG ADMINISTERED WAS 410MG
     Route: 065
     Dates: start: 20220421, end: 20220607
  3. ASPIRIN [Concomitant]
     Active Substance: ASPIRIN
     Indication: Product used for unknown indication
     Dosage: AS NEEDED
     Route: 048
     Dates: start: 2007
  4. AMLODIPINE BESYLATE [Concomitant]
     Active Substance: AMLODIPINE BESYLATE
     Indication: Product used for unknown indication
     Dosage: BD; TWICE PER DAY
     Route: 048
     Dates: start: 2010
  5. AMBROXOL HYDROCHLORIDE [Concomitant]
     Active Substance: AMBROXOL HYDROCHLORIDE
     Indication: Adverse event
     Dosage: 3 TIMES PER DAY
     Route: 048
     Dates: start: 20220510, end: 20220705
  6. MONTELUKAST SODIUM [Concomitant]
     Active Substance: MONTELUKAST SODIUM
     Indication: Adverse event
     Dosage: DAILY; PER DAY
     Route: 048
     Dates: start: 20220509, end: 20220705
  7. HEPARINOID [Concomitant]
     Indication: Prophylaxis
     Dosage: 2 DOSE BD; TWICE PER DAY
     Route: 061
     Dates: start: 20220512, end: 20220704
  8. SODIUM ALGINATE [Concomitant]
     Active Substance: SODIUM ALGINATE
     Indication: Prophylaxis
     Dosage: 40 DOSE 3 TIMES PER DAY
     Route: 048
     Dates: start: 20220513, end: 20220712
  9. ESOMEPRAZOLE MAGNESIUM [Concomitant]
     Active Substance: ESOMEPRAZOLE MAGNESIUM
     Indication: Adverse event
     Dosage: DAILY; PER DAY
     Route: 048
     Dates: start: 20220515, end: 20220705
  10. MEFENAMIC ACID [Concomitant]
     Active Substance: MEFENAMIC ACID
     Indication: Adverse event
     Dosage: 15 DOSE 3 TIMES PER DAY
     Route: 048
     Dates: start: 20220527, end: 20220712
  11. FEBUXOSTAT [Concomitant]
     Active Substance: FEBUXOSTAT
     Indication: Adverse event
     Dosage: DAILY; PER DAY
     Route: 048
     Dates: start: 20220616, end: 20220719
  12. LEVOFLOXACIN HEMIHYDRATE [Concomitant]
     Active Substance: LEVOFLOXACIN
     Indication: Adverse event
     Dosage: DAILY; PER DAY
     Route: 048
     Dates: start: 20220714, end: 20220716
  13. LOXOPROFEN SODIUM DIHYDRATE [Concomitant]
     Active Substance: LOXOPROFEN SODIUM DIHYDRATE
     Indication: Adverse event
     Dosage: AS NEEDED
     Route: 048
     Dates: start: 20220710
  14. OLOPATADINE HYDROCHLORIDE [Concomitant]
     Active Substance: OLOPATADINE HYDROCHLORIDE
     Indication: Product used for unknown indication
     Dosage: 1 DOSE AS NEEDED
     Route: 047
     Dates: start: 2019
  15. KETOPROFEN [Concomitant]
     Active Substance: KETOPROFEN
     Indication: Product used for unknown indication
     Dosage: AS NEEDED
     Route: 061
     Dates: start: 202004
  16. KETOPROFEN [Concomitant]
     Active Substance: KETOPROFEN
     Dosage: AS NEEDED
     Route: 061
     Dates: start: 202004
  17. FELBINAC [Concomitant]
     Active Substance: FELBINAC
     Indication: Product used for unknown indication
     Dosage: 1 DOSE AS NEEDED
     Route: 061
     Dates: start: 202004
  18. FELBINAC [Concomitant]
     Active Substance: FELBINAC
     Dosage: 1 DOSE AS NEEDED
     Route: 061
     Dates: start: 202004
  19. ATORVASTATIN CALCIUM HYDORATE [Concomitant]
     Indication: Product used for unknown indication
     Dosage: DAILY; PER DAY
     Route: 048
     Dates: start: 2006
  20. ASPIRIN [Concomitant]
     Active Substance: ASPIRIN
     Indication: Product used for unknown indication
     Dosage: AS NEEDED
     Route: 048
     Dates: start: 2007
  21. PURIFIED SODIUM HYALURONATE [Concomitant]
     Indication: Product used for unknown indication
     Dosage: 1 UNIT NOT SPECIFIED AS NEEDED
     Route: 047
     Dates: start: 2019

REACTIONS (1)
  - Pneumonitis [Not Recovered/Not Resolved]

NARRATIVE: CASE EVENT DATE: 20220717
